FAERS Safety Report 8301348-0 (Version None)
Quarter: 2012Q2

REPORT INFORMATION
  Report Type: 
  Country: None (occurrence: None)
  Receive Date: 20120420
  Receipt Date: 20120418
  Transmission Date: 20120825
  Serious: Yes (Hospitalization)
  Sender: FDA-Public Use
  Company Number: US-B.I. PHARMACEUTICALS,INC./RIDGEFIELD-2012-BP-07414BP

PATIENT
  Sex: Male

DRUGS (3)
  1. TRICOR [Concomitant]
     Indication: BLOOD TRIGLYCERIDES INCREASED
  2. PRADAXA [Suspect]
     Indication: ATRIAL FIBRILLATION
     Dosage: 300 MG
     Route: 048
     Dates: end: 20111101
  3. MEDICATION NOT FURTHER SPECIFIED [Concomitant]
     Indication: MICTURITION DISORDER

REACTIONS (4)
  - BLOOD URINE PRESENT [None]
  - THROMBOSIS [None]
  - PULMONARY THROMBOSIS [None]
  - DYSPNOEA [None]
